FAERS Safety Report 9809270 (Version 2)
Quarter: 2014Q2

REPORT INFORMATION
  Report Type: Spontaneous
  Country: FR (occurrence: FR)
  Receive Date: 20140110
  Receipt Date: 20140411
  Transmission Date: 20141212
  Serious: Yes (Other)
  Sender: FDA-Public Use
  Company Number: FR-ABBVIE-14P-056-1187537-00

PATIENT
  Age: 2 Year
  Sex: Female

DRUGS (1)
  1. DEPAKINE [Suspect]
     Indication: PETIT MAL EPILEPSY
     Route: 048
     Dates: start: 199803, end: 199807

REACTIONS (2)
  - Autism spectrum disorder [Not Recovered/Not Resolved]
  - Mental retardation [Unknown]
